FAERS Safety Report 5057083-8 (Version None)
Quarter: 2006Q3

REPORT INFORMATION
  Report Type: 
  Country: None (occurrence: None)
  Receive Date: 20060721
  Receipt Date: 20060713
  Transmission Date: 20061208
  Serious: Yes (Other)
  Sender: FDA-Public Use
  Company Number: US-AVENTIS-200615903US

PATIENT
  Sex: Male
  Weight: 81.81 kg

DRUGS (1)
  1. KETEK [Suspect]
     Indication: LARYNGITIS
     Dosage: DOSE: UNK
     Route: 048
     Dates: start: 20051224, end: 20051201

REACTIONS (4)
  - ALANINE AMINOTRANSFERASE INCREASED [None]
  - ASPARTATE AMINOTRANSFERASE INCREASED [None]
  - HEPATITIS [None]
  - SERUM FERRITIN INCREASED [None]
